FAERS Safety Report 9490425 (Version 1)
Quarter: 2013Q3

REPORT INFORMATION
  Report Type: Spontaneous
  Country: US (occurrence: None)
  Receive Date: 20130827
  Receipt Date: 20130827
  Transmission Date: 20140515
  Serious: Yes (Life-Threatening)
  Sender: FDA-Public Use
  Company Number: None

PATIENT
  Age: 35 Year
  Sex: Female
  Weight: 113.4 kg

DRUGS (1)
  1. EFFEXOR [Suspect]
     Indication: DEPRESSION
     Dosage: 1 PILL  TWICE DAILY  BY MOUTH
     Route: 048
     Dates: start: 20130808, end: 20130809

REACTIONS (8)
  - Dysarthria [None]
  - Disturbance in attention [None]
  - Feeling jittery [None]
  - Anxiety [None]
  - Homicidal ideation [None]
  - Self-injurious ideation [None]
  - Hallucination, auditory [None]
  - Psychotic disorder [None]
